FAERS Safety Report 9909778 (Version 1)
Quarter: 2014Q1

REPORT INFORMATION
  Report Type: Spontaneous
  Country: US (occurrence: US)
  Receive Date: 20140219
  Receipt Date: 20140219
  Transmission Date: 20141002
  Serious: No
  Sender: FDA-Public Use
  Company Number: US-PFIZER INC-2014042030

PATIENT
  Age: 60 Year
  Sex: Male

DRUGS (6)
  1. VIAGRA [Suspect]
     Dosage: 100 MG, 1 PO AS DIRECTED
     Route: 048
  2. ALPRAZOLAM [Suspect]
     Dosage: UNK
  3. LORTAB [Suspect]
     Dosage: UNK
  4. BENAZEPRIL [Suspect]
     Dosage: UNK
  5. ADIPEX [Suspect]
     Dosage: UNK
  6. HCTZ [Suspect]
     Dosage: UNK

REACTIONS (2)
  - Drug hypersensitivity [Unknown]
  - Documented hypersensitivity to administered drug [Unknown]
